FAERS Safety Report 9027830 (Version 3)
Quarter: 2013Q1

REPORT INFORMATION
  Report Type: Spontaneous
  Country: US (occurrence: US)
  Receive Date: 20130124
  Receipt Date: 20130315
  Transmission Date: 20140127
  Serious: Yes (Other)
  Sender: FDA-Public Use
  Company Number: US-JNJFOC-20130111102

PATIENT
  Age: 52 Year
  Sex: Female
  Weight: 54.4 kg

DRUGS (5)
  1. IBUPROFEN [Suspect]
     Indication: BACK PAIN
     Route: 048
     Dates: start: 2008, end: 201212
  2. FLEXERIL [Concomitant]
     Indication: BACK PAIN
     Route: 065
  3. FLEXERIL [Concomitant]
     Indication: MUSCLE SPASMS
     Route: 065
  4. PRAVASTATIN [Concomitant]
     Indication: BLOOD CHOLESTEROL INCREASED
     Route: 065
  5. VICODIN [Concomitant]
     Indication: BACK PAIN
     Route: 065

REACTIONS (8)
  - Thyroid disorder [Unknown]
  - Major depression [Unknown]
  - Coagulopathy [Unknown]
  - Local swelling [Unknown]
  - Contusion [Unknown]
  - Hypoaesthesia [Unknown]
  - Weight fluctuation [Unknown]
  - Musculoskeletal stiffness [Unknown]
